FAERS Safety Report 6845014-7 (Version None)
Quarter: 2010Q2

REPORT INFORMATION
  Report Type: 
  Country: None (occurrence: None)
  Receive Date: 20100629
  Receipt Date: 20100311
  Transmission Date: 20101027
  Serious: No
  Sender: FDA-Public Use
  Company Number: US-WYE-H14059510

PATIENT
  Age: 68 Year
  Sex: Female

DRUGS (7)
  1. DESVENLAFAXINE SUCCINATE MONOHYDRATE (DESVENLAFAXINE SUCCINATE MONOHYD [Suspect]
     Indication: DEPRESSION
     Dosage: 50 MG 1X PER 1 DAY, ORAL
     Route: 048
     Dates: start: 20091201
  2. AMBIEN [Concomitant]
  3. ASPIRIN [Concomitant]
  4. LISINOPRIL [Concomitant]
  5. KLONOPIN [Concomitant]
  6. ZOLPIDEM [Concomitant]
  7. PRAVASTATIN [Concomitant]

REACTIONS (1)
  - BLOOD CHOLESTEROL INCREASED [None]
